FAERS Safety Report 17896398 (Version 1)
Quarter: 2020Q2

REPORT INFORMATION
  Report Type: Spontaneous
  Country: US (occurrence: US)
  Receive Date: 20200615
  Receipt Date: 20200615
  Transmission Date: 20200714
  Serious: Yes (Hospitalization, Other)
  Sender: FDA-Public Use
  Company Number: US-PURDUE-USA-2020-0154371

PATIENT
  Sex: Male

DRUGS (1)
  1. OXYCODONE HYDROCHLORIDE (SIMILAR TO NDA 22-272) [Suspect]
     Active Substance: OXYCODONE HYDROCHLORIDE
     Indication: PRODUCT USED FOR UNKNOWN INDICATION
     Dosage: 8 X 15 MG, DAILY
     Route: 048

REACTIONS (10)
  - Post-traumatic stress disorder [Unknown]
  - Impaired quality of life [Unknown]
  - Amnesia [Unknown]
  - Hospitalisation [Unknown]
  - Depression [Unknown]
  - Unevaluable event [Unknown]
  - Drug dependence [Not Recovered/Not Resolved]
  - Overdose [Unknown]
  - Panic attack [Unknown]
  - Product prescribing issue [Unknown]
